FAERS Safety Report 8416547-7 (Version None)
Quarter: 2012Q2

REPORT INFORMATION
  Report Type: 
  Country: None (occurrence: None)
  Receive Date: 20120606
  Receipt Date: 20120530
  Transmission Date: 20120825
  Serious: Yes (Hospitalization)
  Sender: FDA-Public Use
  Company Number: FR-GLAXOSMITHKLINE-B0804723A

PATIENT
  Sex: Female

DRUGS (6)
  1. ARIXTRA [Suspect]
     Indication: DEEP VEIN THROMBOSIS
     Dosage: 7.5MG PER DAY
     Route: 058
     Dates: start: 20111103, end: 20120312
  2. NEXIUM [Concomitant]
     Dosage: 40MG PER DAY
     Route: 048
     Dates: start: 20120117
  3. PREDNISONE TAB [Concomitant]
     Dosage: 20MG TWICE PER DAY
     Route: 048
     Dates: start: 20120215, end: 20120220
  4. ONBREZ [Concomitant]
     Indication: CHRONIC OBSTRUCTIVE PULMONARY DISEASE
     Route: 055
     Dates: start: 20111118
  5. DILTIAZEM HCL [Concomitant]
     Indication: HYPERTENSION
     Dosage: 60MG TWICE PER DAY
     Route: 048
     Dates: start: 20110408
  6. IPRATROPIUM BROMIDE [Concomitant]
     Indication: CHRONIC OBSTRUCTIVE PULMONARY DISEASE
     Route: 055
     Dates: start: 20120215

REACTIONS (2)
  - INCORRECT DRUG ADMINISTRATION DURATION [None]
  - HAEMATOMA [None]
